FAERS Safety Report 8172682-2 (Version None)
Quarter: 2012Q1

REPORT INFORMATION
  Report Type: 
  Country: None (occurrence: None)
  Receive Date: 20120229
  Receipt Date: 20120223
  Transmission Date: 20120608
  Serious: Yes (Hospitalization, Other)
  Sender: FDA-Public Use
  Company Number: BR-ABBOTT-10P-020-0638961-00

PATIENT
  Sex: Female
  Weight: 60 kg

DRUGS (5)
  1. MELOXICAN [Concomitant]
     Indication: PAIN
     Route: 048
     Dates: start: 20100301
  2. CORTISONE ACETATE [Concomitant]
     Indication: PAIN
     Route: 048
  3. HUMIRA [Suspect]
     Indication: SYSTEMIC LUPUS ERYTHEMATOSUS
     Route: 058
     Dates: start: 20100113, end: 20100401
  4. HUMIRA [Suspect]
     Indication: RHEUMATOID ARTHRITIS
  5. CORTISONE ACETATE [Concomitant]
     Indication: ARTHRITIS
     Route: 048
     Dates: start: 20060601

REACTIONS (12)
  - INFLAMMATION [None]
  - NECK PAIN [None]
  - PAIN IN EXTREMITY [None]
  - ARTHRITIS [None]
  - HYPERTENSION [None]
  - WEIGHT DECREASED [None]
  - PAIN [None]
  - HYPOVITAMINOSIS [None]
  - MYOSITIS [None]
  - ARTHRALGIA [None]
  - RHEUMATOID ARTHRITIS [None]
  - MUSCULOSKELETAL PAIN [None]
